FAERS Safety Report 21911153 (Version 1)
Quarter: 2023Q1

REPORT INFORMATION
  Report Type: Spontaneous
  Country: US (occurrence: None)
  Receive Date: 20230125
  Receipt Date: 20230125
  Transmission Date: 20230418
  Serious: Yes (Life-Threatening)
  Sender: FDA-Public Use
  Company Number: None

PATIENT
  Age: 71 Year
  Sex: Male
  Weight: 94.05 kg

DRUGS (4)
  1. AMLODIPINE BESYLATE\BENAZEPRIL HYDROCHLORIDE [Suspect]
     Active Substance: AMLODIPINE BESYLATE\BENAZEPRIL HYDROCHLORIDE
     Indication: Hypertension
     Dosage: OTHER QUANTITY : 90 CAPSULE(S);?FREQUENCY : DAILY;?
     Route: 048
     Dates: start: 20220801, end: 20221016
  2. Zolpidem 5 or 10mg occasionally [Concomitant]
  3. VITAMIN B12 [Concomitant]
     Active Substance: CYANOCOBALAMIN
  4. POTASSIUM [Concomitant]
     Active Substance: POTASSIUM

REACTIONS (4)
  - Blood pressure inadequately controlled [None]
  - Drug ineffective [None]
  - Manufacturing materials issue [None]
  - Product quality issue [None]

NARRATIVE: CASE EVENT DATE: 20220801
